FAERS Safety Report 6143131-0 (Version None)
Quarter: 2009Q2

REPORT INFORMATION
  Report Type: 
  Country: None (occurrence: None)
  Receive Date: 20090403
  Receipt Date: 20090329
  Transmission Date: 20091009
  Serious: Yes (Death, Hospitalization)
  Sender: FDA-Public Use
  Company Number: IL-ELI_LILLY_AND_COMPANY-IL200903002903

PATIENT
  Age: 65 Year
  Sex: Male

DRUGS (4)
  1. ALIMTA [Suspect]
     Indication: NON-SMALL CELL LUNG CANCER
     Dosage: 700 MG, ONCE EVERY 3 WEEKS
     Route: 042
  2. ALIMTA [Suspect]
     Dosage: 700 MG,  ON DAY 1
     Route: 042
  3. ALIMTA [Suspect]
     Dosage: 700 MG, ON DAY 8
     Route: 065
  4. CISPLATIN [Concomitant]
     Indication: NON-SMALL CELL LUNG CANCER
     Dosage: UNK, UNKNOWN
     Route: 065

REACTIONS (7)
  - ACCIDENTAL OVERDOSE [None]
  - ASCITES [None]
  - BLOOD BILIRUBIN INCREASED [None]
  - DEATH [None]
  - NEUTROPENIA [None]
  - RESPIRATORY DISORDER [None]
  - THROMBOCYTOPENIA [None]
